FAERS Safety Report 23093841 (Version 3)
Quarter: 2023Q4

REPORT INFORMATION
  Report Type: Report from Study
  Country: GR (occurrence: GR)
  Receive Date: 20231023
  Receipt Date: 20231214
  Transmission Date: 20240110
  Serious: Yes (Hospitalization, Other)
  Sender: FDA-Public Use
  Company Number: GR-ABBVIE-5458253

PATIENT
  Sex: Female
  Weight: 75 kg

DRUGS (10)
  1. VENETOCLAX [Suspect]
     Active Substance: VENETOCLAX
     Indication: Chronic lymphocytic leukaemia
     Route: 048
  2. VENETOCLAX [Suspect]
     Active Substance: VENETOCLAX
     Indication: Chronic lymphocytic leukaemia
     Route: 048
     Dates: start: 20230221, end: 20230330
  3. VENETOCLAX [Suspect]
     Active Substance: VENETOCLAX
     Indication: Chronic lymphocytic leukaemia
     Route: 048
     Dates: start: 2023
  4. NEBIVOLOL [Concomitant]
     Active Substance: NEBIVOLOL
     Indication: Hypertension
     Route: 048
  5. ATORVASTATIN [Concomitant]
     Active Substance: ATORVASTATIN
     Indication: Dyslipidaemia
     Route: 048
  6. ZOLPIDEM [Concomitant]
     Active Substance: ZOLPIDEM TARTRATE
     Indication: Sleep disorder therapy
     Dosage: TIME INTERVAL: AS NECESSARY
     Route: 048
     Dates: end: 20230301
  7. CITALOPRAM [Concomitant]
     Active Substance: CITALOPRAM HYDROBROMIDE
     Indication: Depression
     Route: 048
  8. FAMOTIDINE AN [Concomitant]
     Indication: Prophylaxis
     Route: 048
     Dates: start: 20230221
  9. ALLOPURINOL [Concomitant]
     Active Substance: ALLOPURINOL
     Indication: Prophylaxis
     Dosage: 300 UNSPECIFIED UNITS
     Route: 048
     Dates: start: 20230221, end: 20230502
  10. QUETIAPINE [Concomitant]
     Active Substance: QUETIAPINE
     Indication: Sleep disorder therapy
     Route: 048
     Dates: end: 20230301

REACTIONS (17)
  - Cerebral small vessel ischaemic disease [Recovered/Resolved]
  - Necrosis [Recovered/Resolved]
  - Pyrexia [Recovered/Resolved]
  - Chronic lymphocytic leukaemia [Recovered/Resolved]
  - Tumour flare [Recovered/Resolved]
  - Fall [Recovered/Resolved]
  - Lymph node pain [Recovered/Resolved]
  - Necrosis [Recovered/Resolved]
  - Chills [Recovered/Resolved]
  - Herpes simplex encephalitis [Recovered/Resolved]
  - Disorientation [Recovered/Resolved]
  - Dermatitis [Recovered/Resolved]
  - Carotid artery stenosis [Recovered/Resolved]
  - Central nervous system infection [Recovered/Resolved]
  - Soft tissue infection [Recovered/Resolved]
  - Drug interaction [Recovered/Resolved]
  - Pyrexia [Recovered/Resolved]

NARRATIVE: CASE EVENT DATE: 20230101
